FAERS Safety Report 6450586-0 (Version None)
Quarter: 2009Q4

REPORT INFORMATION
  Report Type: 
  Country: None (occurrence: None)
  Receive Date: 20091116
  Receipt Date: 20090722
  Transmission Date: 20100525
  Serious: No
  Sender: FDA-Public Use
  Company Number: WAES 0907USA03970

PATIENT

DRUGS (1)
  1. ISENTRESS [Suspect]
     Dosage: PO
     Route: 048

REACTIONS (1)
  - ADVERSE EVENT [None]
